FAERS Safety Report 5515685-6 (Version None)
Quarter: 2007Q4

REPORT INFORMATION
  Report Type: 
  Country: None (occurrence: None)
  Receive Date: 20071113
  Receipt Date: 20070823
  Transmission Date: 20080405
  Serious: No
  Sender: FDA-Public Use
  Company Number: A0676049A

PATIENT
  Age: 69 Year
  Sex: Male

DRUGS (14)
  1. COREG [Suspect]
     Dosage: 6.25MG TWICE PER DAY
     Route: 048
     Dates: start: 20020101
  2. LANOXIN [Concomitant]
  3. HYDROCHLOROTHIAZIDE [Concomitant]
  4. SPIRONOLACTONE [Concomitant]
  5. IRON SUPPLEMENTS [Concomitant]
  6. PLAVIX [Concomitant]
  7. ISOSORBIDE DINITRATE [Concomitant]
  8. LEVOTHYROXINE SODIUM [Concomitant]
  9. FINASTERIDE [Concomitant]
  10. ALLOPURINOL [Concomitant]
  11. SINGULAIR [Concomitant]
  12. TORSEMIDE [Concomitant]
  13. INSULIN [Concomitant]
  14. LANTUS [Concomitant]

REACTIONS (3)
  - DIZZINESS [None]
  - HEART RATE INCREASED [None]
  - NOCTURNAL DYSPNOEA [None]
